FAERS Safety Report 4684374-2 (Version None)
Quarter: 2005Q2

REPORT INFORMATION
  Report Type: 
  Country: None (occurrence: None)
  Receive Date: 20050531
  Receipt Date: 20041213
  Transmission Date: 20051028
  Serious: Yes (Other)
  Sender: FDA-Public Use
  Company Number: USA040258611

PATIENT
  Age: 44 Year
  Sex: Female
  Weight: 112 kg

DRUGS (1)
  1. ZYPREXA [Suspect]
     Indication: SCHIZOAFFECTIVE DISORDER
     Dosage: 40 MG DAY
     Dates: start: 20010101

REACTIONS (3)
  - DIABETES MELLITUS [None]
  - PRESCRIBED OVERDOSE [None]
  - WEIGHT INCREASED [None]
